FAERS Safety Report 6251132-7 (Version None)
Quarter: 2009Q2

REPORT INFORMATION
  Report Type: 
  Country: None (occurrence: None)
  Receive Date: 20090630
  Receipt Date: 20090401
  Transmission Date: 20091009
  Serious: No
  Sender: FDA-Public Use
  Company Number: US-ABBOTT-09P-163-0566272-00

PATIENT
  Sex: Female

DRUGS (3)
  1. ZEMPLAR [Suspect]
     Indication: HYPERPARATHYROIDISM
     Dates: start: 20081201
  2. IRON [Suspect]
     Indication: DRUG USE FOR UNKNOWN INDICATION
     Route: 048
  3. CYLERT PERITONEAL DIALYSIS [Concomitant]
     Indication: DRUG USE FOR UNKNOWN INDICATION
     Dosage: NIGHTLY

REACTIONS (1)
  - ABDOMINAL DISCOMFORT [None]
